FAERS Safety Report 4483998-5 (Version None)
Quarter: 2004Q4

REPORT INFORMATION
  Report Type: 
  Country: None (occurrence: None)
  Receive Date: 20041025
  Receipt Date: 20040527
  Transmission Date: 20050328
  Serious: Yes (Life-Threatening, Hospitalization, Other)
  Sender: FDA-Public Use
  Company Number: US-MERCK-0405USA02054

PATIENT
  Age: 55 Year
  Sex: Female
  Weight: 57 kg

DRUGS (7)
  1. MAXALT [Suspect]
     Indication: MIGRAINE
     Route: 060
     Dates: start: 19980601, end: 20040424
  2. ZOLOFT [Suspect]
     Indication: MIGRAINE PROPHYLAXIS
     Route: 048
     Dates: start: 20020601, end: 20040424
  3. INSULIN [Concomitant]
     Route: 058
  4. DIOVAN [Concomitant]
     Route: 065
  5. ESTROGENS (UNSPECIFIED) [Concomitant]
     Route: 061
  6. LESCOL [Concomitant]
     Route: 065
  7. CARDIZEM [Concomitant]
     Route: 065

REACTIONS (13)
  - ACUTE RESPIRATORY FAILURE [None]
  - DRUG INTERACTION [None]
  - ENCEPHALOPATHY [None]
  - HYPERTHERMIA MALIGNANT [None]
  - HYPOKALAEMIA [None]
  - HYPOMAGNESAEMIA [None]
  - MITRAL VALVE INCOMPETENCE [None]
  - NAUSEA [None]
  - SEROTONIN SYNDROME [None]
  - SINUSITIS [None]
  - URINARY TRACT INFECTION BACTERIAL [None]
  - VENTRICULAR TACHYCARDIA [None]
  - VOMITING [None]
